FAERS Safety Report 6929043-0 (Version None)
Quarter: 2010Q3

REPORT INFORMATION
  Report Type: 
  Country: None (occurrence: None)
  Receive Date: 20100817
  Receipt Date: 20100809
  Transmission Date: 20110219
  Serious: Yes (Hospitalization)
  Sender: FDA-Public Use
  Company Number: PHHO2010FR10634

PATIENT
  Sex: Male
  Weight: 75 kg

DRUGS (10)
  1. NEORAL [Suspect]
     Indication: RENAL TRANSPLANT
     Dosage: 250
     Route: 048
     Dates: start: 20100605
  2. CORTANCYL [Suspect]
     Indication: RENAL TRANSPLANT
     Dosage: 7.5
     Route: 048
     Dates: start: 20100605
  3. CELLCEPT [Suspect]
     Indication: RENAL TRANSPLANT
     Dosage: 3 G
     Route: 048
     Dates: start: 20100603
  4. XANAX [Concomitant]
     Dosage: UNK
  5. KARDEGIC [Concomitant]
     Dosage: UNK
  6. ROVALCYTE [Concomitant]
     Dosage: UNK
  7. BACTRIM [Concomitant]
  8. PANTOPRAZOLE SODIUM [Concomitant]
     Dosage: UNK
  9. AMLODIPINE [Concomitant]
     Dosage: UNK
  10. ACEBUTOLOL HYDROCHLORIDE [Concomitant]
     Dosage: UNK

REACTIONS (3)
  - LYMPHOCELE [None]
  - RENAL FAILURE ACUTE [None]
  - THERAPEUTIC PROCEDURE [None]
